FAERS Safety Report 12443215 (Version 5)
Quarter: 2016Q3

REPORT INFORMATION
  Report Type: Report from Study
  Country: CA (occurrence: CA)
  Receive Date: 20160607
  Receipt Date: 20160805
  Transmission Date: 20161109
  Serious: Yes (Other)
  Sender: FDA-Public Use
  Company Number: CA-JNJFOC-20160506840

PATIENT
  Age: 84 Year
  Sex: Male

DRUGS (1)
  1. IMBRUVICA [Suspect]
     Active Substance: IBRUTINIB
     Indication: CHRONIC LYMPHOCYTIC LEUKAEMIA
     Route: 048
     Dates: start: 20160429, end: 20160727

REACTIONS (15)
  - Transurethral prostatectomy [Unknown]
  - Contusion [Not Recovered/Not Resolved]
  - Oedema peripheral [Unknown]
  - Pleural effusion [Not Recovered/Not Resolved]
  - Decreased appetite [Unknown]
  - Blood urine present [Not Recovered/Not Resolved]
  - Diarrhoea [Not Recovered/Not Resolved]
  - Urinary tract infection [Not Recovered/Not Resolved]
  - Activities of daily living impaired [None]
  - Fatigue [Unknown]
  - Micturition disorder [Not Recovered/Not Resolved]
  - Malaise [Recovered/Resolved]
  - Groin pain [Not Recovered/Not Resolved]
  - Asthenia [Not Recovered/Not Resolved]
  - Dizziness [Not Recovered/Not Resolved]

NARRATIVE: CASE EVENT DATE: 20160429
